FAERS Safety Report 6994460-X (Version None)
Quarter: 2010Q3

REPORT INFORMATION
  Report Type: 
  Country: None (occurrence: None)
  Receive Date: 20100917
  Receipt Date: 20100914
  Transmission Date: 20110219
  Serious: Yes (Death)
  Sender: FDA-Public Use
  Company Number: KR-JNJFOC-20100904746

PATIENT
  Sex: Male
  Weight: 76.3 kg

DRUGS (12)
  1. SPORANOX [Suspect]
     Indication: FEBRILE NEUTROPENIA
     Route: 042
  2. SPORANOX [Suspect]
     Route: 042
  3. SPORANOX [Suspect]
     Route: 042
  4. SPORANOX [Suspect]
     Route: 048
  5. AMIKACIN [Concomitant]
     Indication: PROPHYLAXIS
     Route: 042
  6. CEFEPIME [Concomitant]
     Indication: PROPHYLAXIS
     Route: 042
  7. CEFTAZIDIME [Concomitant]
     Indication: SEPSIS
     Route: 042
  8. CEFTAZIDIME [Concomitant]
     Route: 042
  9. CIPROFLOXACIN [Concomitant]
     Indication: PROPHYLAXIS
     Route: 042
  10. ISEPAMICIN SULFATE [Concomitant]
     Indication: PYREXIA
     Route: 042
  11. MEROPENEM DRIED SODIUM CARBONATE [Concomitant]
     Indication: PYREXIA
     Route: 042
  12. TEICOPLANIN [Concomitant]
     Indication: PYREXIA
     Route: 042

REACTIONS (3)
  - PULMONARY OEDEMA [None]
  - RENAL FAILURE ACUTE [None]
  - SEPTIC SHOCK [None]
